FAERS Safety Report 21991847 (Version 2)
Quarter: 2023Q1

REPORT INFORMATION
  Report Type: Report from Study
  Country: US (occurrence: US)
  Receive Date: 20230214
  Receipt Date: 20230307
  Transmission Date: 20230417
  Serious: Yes (Other)
  Sender: FDA-Public Use
  Company Number: US-GW PHARMA-2023-US-003163

PATIENT
  Sex: Male
  Weight: 25.4 kg

DRUGS (2)
  1. EPIDIOLEX [Suspect]
     Active Substance: CANNABIDIOL
     Indication: Lennox-Gastaut syndrome
     Dosage: 1.2 MILLILITER, BID
     Route: 048
     Dates: start: 20221003
  2. MELATONIN PLUS [MELATONIN;OXITRIPTAN;THEANINE] [Concomitant]
     Indication: Product used for unknown indication
     Dosage: UNK

REACTIONS (3)
  - Muscle twitching [Unknown]
  - Affective disorder [Unknown]
  - Decreased appetite [Unknown]
